FAERS Safety Report 14920585 (Version 2)
Quarter: 2020Q3

REPORT INFORMATION
  Report Type: Report from Study
  Country: DE (occurrence: DE)
  Receive Date: 20180521
  Receipt Date: 20200805
  Transmission Date: 20201102
  Serious: Yes (Hospitalization)
  Sender: FDA-Public Use
  Company Number: DE-SHIRE-DE201818565

PATIENT

DRUGS (36)
  1. TEDUGLUTIDE [Suspect]
     Active Substance: TEDUGLUTIDE
     Dosage: 2.0 MG, 3 PER WEEK
     Route: 065
     Dates: start: 20150925, end: 20151001
  2. TEDUGLUTIDE [Suspect]
     Active Substance: TEDUGLUTIDE
     Dosage: 2.0 MG, 4 PER WEEK
     Route: 065
     Dates: start: 20151002, end: 20151008
  3. TEDUGLUTIDE [Suspect]
     Active Substance: TEDUGLUTIDE
     Dosage: 2.0 MG, 4 PER WEEK
     Route: 065
     Dates: start: 20151002, end: 20151008
  4. TEDUGLUTIDE [Suspect]
     Active Substance: TEDUGLUTIDE
     Dosage: 2.7 MG, 7 PER WEEK
     Route: 005
     Dates: start: 20161027
  5. TEDUGLUTIDE [Suspect]
     Active Substance: TEDUGLUTIDE
     Indication: SHORT-BOWEL SYNDROME
     Dosage: 3.8 MG, 1X/DAY:QD
     Route: 065
     Dates: start: 20150511, end: 20150911
  6. TEDUGLUTIDE [Suspect]
     Active Substance: TEDUGLUTIDE
     Dosage: 2.0 MG, 1X/DAY:QD
     Route: 065
     Dates: start: 20151015, end: 201604
  7. TEDUGLUTIDE [Suspect]
     Active Substance: TEDUGLUTIDE
     Dosage: 2.0 MG, 3 PER WEEK
     Route: 065
     Dates: start: 20150925, end: 20151001
  8. TEDUGLUTIDE [Suspect]
     Active Substance: TEDUGLUTIDE
     Dosage: 2.0 MG, 4 PER WEEK
     Route: 065
     Dates: start: 20151002, end: 20151008
  9. TEDUGLUTIDE [Suspect]
     Active Substance: TEDUGLUTIDE
     Dosage: 2.0 MG, 4 PER WEEK
     Route: 065
     Dates: start: 20151009, end: 20151015
  10. ANALGESIC [Concomitant]
     Active Substance: UNSPECIFIED INGREDIENT
     Indication: INTERVERTEBRAL DISC PROTRUSION
  11. TEDUGLUTIDE [Suspect]
     Active Substance: TEDUGLUTIDE
     Dosage: 2.0 MG, 4 PER WEEK
     Route: 065
     Dates: start: 20150918, end: 20150924
  12. TEDUGLUTIDE [Suspect]
     Active Substance: TEDUGLUTIDE
     Dosage: 2.0 MG, 1X/DAY:QD
     Route: 065
     Dates: start: 20151015, end: 201604
  13. TEDUGLUTIDE [Suspect]
     Active Substance: TEDUGLUTIDE
     Dosage: 2.0 MG, 3 PER WEEK
     Route: 065
     Dates: start: 20150925, end: 20151001
  14. TEDUGLUTIDE [Suspect]
     Active Substance: TEDUGLUTIDE
     Dosage: 2.0 MG, 3 PER WEEK
     Route: 065
     Dates: start: 20150925, end: 20151001
  15. TEDUGLUTIDE [Suspect]
     Active Substance: TEDUGLUTIDE
     Dosage: 2.0 MG, 4 PER WEEK
     Route: 065
     Dates: start: 20151009, end: 20151015
  16. TEDUGLUTIDE [Suspect]
     Active Substance: TEDUGLUTIDE
     Dosage: 2.0 MG, 1X/DAY:QD
     Route: 065
     Dates: start: 20151015, end: 201604
  17. TEDUGLUTIDE [Suspect]
     Active Substance: TEDUGLUTIDE
     Dosage: 2.5 MG, 7 PER WEEK
     Route: 065
     Dates: start: 20160419, end: 20161026
  18. TEDUGLUTIDE [Suspect]
     Active Substance: TEDUGLUTIDE
     Dosage: 2.7 MG, 7 PER WEEK
     Route: 005
     Dates: start: 20161027
  19. METAMIZOL [Concomitant]
     Active Substance: METAMIZOLE SODIUM
     Indication: SPINAL STENOSIS
  20. TEDUGLUTIDE [Suspect]
     Active Substance: TEDUGLUTIDE
     Indication: SHORT-BOWEL SYNDROME
     Dosage: 3.8 MG, 1X/DAY:QD
     Route: 065
     Dates: start: 20150511, end: 20150911
  21. TEDUGLUTIDE [Suspect]
     Active Substance: TEDUGLUTIDE
     Dosage: 2.0 MG, 4 PER WEEK
     Route: 065
     Dates: start: 20151009, end: 20151015
  22. TEDUGLUTIDE [Suspect]
     Active Substance: TEDUGLUTIDE
     Dosage: 2.0 MG, 4 PER WEEK
     Route: 065
     Dates: start: 20151009, end: 20151015
  23. PANTOPRAZOLE [Concomitant]
     Active Substance: PANTOPRAZOLE
     Indication: OESOPHAGITIS
  24. TEDUGLUTIDE [Suspect]
     Active Substance: TEDUGLUTIDE
     Indication: SHORT-BOWEL SYNDROME
     Dosage: 3.8 MG, 1X/DAY:QD
     Route: 065
     Dates: start: 20150511, end: 20150911
  25. TEDUGLUTIDE [Suspect]
     Active Substance: TEDUGLUTIDE
     Dosage: 2.0 MG, 4 PER WEEK
     Route: 065
     Dates: start: 20150918, end: 20150924
  26. TEDUGLUTIDE [Suspect]
     Active Substance: TEDUGLUTIDE
     Dosage: 2.0 MG, 1X/DAY:QD
     Route: 065
     Dates: start: 20151015, end: 201604
  27. TEDUGLUTIDE [Suspect]
     Active Substance: TEDUGLUTIDE
     Dosage: 2.5 MG, 7 PER WEEK
     Route: 065
     Dates: start: 20160419, end: 20161026
  28. TEDUGLUTIDE [Suspect]
     Active Substance: TEDUGLUTIDE
     Dosage: 2.5 MG, 7 PER WEEK
     Route: 065
     Dates: start: 20160419, end: 20161026
  29. TILIDIN [Concomitant]
     Active Substance: NALOXONE HYDROCHLORIDE\TILIDINE HYDROCHLORIDE
     Indication: SPINAL STENOSIS
     Route: 048
  30. TEDUGLUTIDE [Suspect]
     Active Substance: TEDUGLUTIDE
     Dosage: 2.0 MG, 4 PER WEEK
     Route: 065
     Dates: start: 20151002, end: 20151008
  31. TEDUGLUTIDE [Suspect]
     Active Substance: TEDUGLUTIDE
     Dosage: 2.7 MG, 7 PER WEEK
     Route: 005
     Dates: start: 20161027
  32. TEDUGLUTIDE [Suspect]
     Active Substance: TEDUGLUTIDE
     Dosage: 2.7 MG, 7 PER WEEK
     Route: 005
     Dates: start: 20161027
  33. TEDUGLUTIDE [Suspect]
     Active Substance: TEDUGLUTIDE
     Indication: SHORT-BOWEL SYNDROME
     Dosage: 3.8 MG, 1X/DAY:QD
     Route: 065
     Dates: start: 20150511, end: 20150911
  34. TEDUGLUTIDE [Suspect]
     Active Substance: TEDUGLUTIDE
     Dosage: 2.0 MG, 4 PER WEEK
     Route: 065
     Dates: start: 20150918, end: 20150924
  35. TEDUGLUTIDE [Suspect]
     Active Substance: TEDUGLUTIDE
     Dosage: 2.0 MG, 4 PER WEEK
     Route: 065
     Dates: start: 20150918, end: 20150924
  36. TEDUGLUTIDE [Suspect]
     Active Substance: TEDUGLUTIDE
     Dosage: 2.5 MG, 7 PER WEEK
     Route: 065
     Dates: start: 20160419, end: 20161026

REACTIONS (2)
  - Endocarditis [Recovered/Resolved]
  - Vascular device infection [Recovered/Resolved]

NARRATIVE: CASE EVENT DATE: 201804
